FAERS Safety Report 9025225 (Version 3)
Quarter: 2013Q1

REPORT INFORMATION
  Report Type: Spontaneous
  Country: ES (occurrence: ES)
  Receive Date: 20130122
  Receipt Date: 20130304
  Transmission Date: 20140127
  Serious: Yes (Death, Hospitalization, Other)
  Sender: FDA-Public Use
  Company Number: ES-VERTEX PHARMACEUTICALS INC.-2012-025699

PATIENT
  Age: 64 Year
  Sex: Male

DRUGS (3)
  1. INCIVO [Suspect]
     Indication: CHRONIC HEPATITIS C
     Dosage: 750 MG, TID
     Route: 048
     Dates: start: 20120427, end: 20121117
  2. COPEGUS [Suspect]
     Indication: CHRONIC HEPATITIS C
     Dosage: DOSAGE FORM: UNSPECIFIED
     Route: 048
     Dates: start: 20120827, end: 20121225
  3. PEGASYS [Suspect]
     Indication: CHRONIC HEPATITIS C
     Dosage: DOSAGE FORM: UNSPECIFIED
     Route: 058
     Dates: start: 20120827, end: 20121224

REACTIONS (10)
  - Pyrexia [Unknown]
  - Septic shock [Fatal]
  - Renal failure [Fatal]
  - Bacteraemia [Fatal]
  - Malaise [Unknown]
  - Acute respiratory distress syndrome [Fatal]
  - Multi-organ failure [Fatal]
  - Rash [Unknown]
  - Anaemia [Unknown]
  - Drug eruption [Recovered/Resolved]
